FAERS Safety Report 23489597 (Version 2)
Quarter: 2024Q4

REPORT INFORMATION
  Report Type: Spontaneous
  Country: US (occurrence: US)
  Receive Date: 20240206
  Receipt Date: 20241018
  Transmission Date: 20250114
  Serious: No
  Sender: ROCHE
  Company Number: US-ROCHE-3465398

PATIENT
  Age: 35 Year
  Sex: Female

DRUGS (2)
  1. XOLAIR [Suspect]
     Active Substance: OMALIZUMAB
     Indication: Dermatitis atopic
     Dosage: (2) 150 MG SYRINGES
     Route: 058
     Dates: start: 202110
  2. XOLAIR [Suspect]
     Active Substance: OMALIZUMAB
     Indication: Idiopathic urticaria
     Route: 058
     Dates: start: 202112

REACTIONS (6)
  - Product dose omission issue [Unknown]
  - Product complaint [Unknown]
  - No adverse event [Unknown]
  - Accidental exposure to product [Unknown]
  - Device malfunction [Unknown]
  - Product complaint [Unknown]

NARRATIVE: CASE EVENT DATE: 20231124
